FAERS Safety Report 14913824 (Version 1)
Quarter: 2018Q2

REPORT INFORMATION
  Report Type: Spontaneous
  Country: GB (occurrence: GB)
  Receive Date: 20180518
  Receipt Date: 20180518
  Transmission Date: 20180711
  Serious: Yes (Life-Threatening, Hospitalization, Other)
  Sender: FDA-Public Use
  Company Number: GB-AMGEN-GBRSP2018066138

PATIENT
  Age: 5 Year
  Sex: Male

DRUGS (6)
  1. METHYLPREDNISOLONE. [Concomitant]
     Active Substance: METHYLPREDNISOLONE
     Dosage: 8 MG/KG, QD
  2. CYCLOSPORINE. [Concomitant]
     Active Substance: CYCLOSPORINE
     Indication: PROPHYLAXIS AGAINST GRAFT VERSUS HOST DISEASE
  3. FILGRASTIM [Suspect]
     Active Substance: FILGRASTIM
     Indication: NEUTROPENIA
     Dosage: UNK, 3 TIMES/WK
     Route: 065
  4. FLUDARABINE [Concomitant]
     Active Substance: FLUDARABINE PHOSPHATE
     Dosage: 25 MG/M2, UNK
  5. TREOSULFAN [Concomitant]
     Active Substance: TREOSULFAN
     Dosage: 12 MG/M2, UNK
  6. MUROMONAB CD3 [Concomitant]
     Active Substance: MUROMONAB-CD3
     Dosage: 0.02 MG/KG, UNK

REACTIONS (9)
  - Pulmonary haemorrhage [Recovered/Resolved]
  - Thrombocytopenia [Recovered/Resolved]
  - Infection [Recovering/Resolving]
  - Device related sepsis [Unknown]
  - Lower respiratory tract infection [Unknown]
  - Bone marrow disorder [Unknown]
  - Splenomegaly [Unknown]
  - Off label use [Unknown]
  - Graft versus host disease [Unknown]
